FAERS Safety Report 8271283-5 (Version None)
Quarter: 2012Q2

REPORT INFORMATION
  Report Type: 
  Country: None (occurrence: None)
  Receive Date: 20120406
  Receipt Date: 20120328
  Transmission Date: 20120825
  Serious: Yes (Other)
  Sender: FDA-Public Use
  Company Number: VAL_00734_2012

PATIENT
  Sex: Female

DRUGS (2)
  1. ACE  INHIBITORS [Concomitant]
  2. ROCALTROL [Suspect]
     Indication: PRODUCT USED FOR UNKNOWN INDICATION
     Dosage: (DF)
     Dates: end: 20110501

REACTIONS (2)
  - RASH [None]
  - ALTERED STATE OF CONSCIOUSNESS [None]
